FAERS Safety Report 14022089 (Version 2)
Quarter: 2017Q4

REPORT INFORMATION
  Report Type: Report from Study
  Country: US (occurrence: US)
  Receive Date: 20170928
  Receipt Date: 20171019
  Transmission Date: 20180321
  Serious: Yes (Death, Life-Threatening, Other)
  Sender: FDA-Public Use
  Company Number: US-ACTELION-A-US2016-145280

PATIENT
  Age: 63 Year
  Sex: Female

DRUGS (12)
  1. LACTULOSE. [Concomitant]
     Active Substance: LACTULOSE
     Dosage: 30 ML, PRN
     Dates: start: 20160413
  2. PREDNISONE. [Concomitant]
     Active Substance: PREDNISONE
     Dosage: UNK
     Dates: start: 20170309
  3. BUMETANIDE. [Concomitant]
     Active Substance: BUMETANIDE
     Indication: POLYURIA
     Dosage: 1 MG, QD
     Dates: start: 20170530
  4. LANTUS XR [Concomitant]
     Active Substance: INSULIN GLARGINE
     Indication: HYPERGLYCAEMIA
     Dosage: 30 U, QD
     Dates: start: 20170113
  5. SPIRONOLACTONE. [Concomitant]
     Active Substance: SPIRONOLACTONE
     Indication: POLYURIA
     Dosage: 50 MG, QD
     Route: 048
     Dates: start: 20170530
  6. SILDENAFIL. [Concomitant]
     Active Substance: SILDENAFIL
  7. COLESTIPOL [Concomitant]
     Active Substance: COLESTIPOL
     Indication: BLOOD CHOLESTEROL INCREASED
     Dosage: 1 G, BID
     Dates: start: 20170330
  8. CYCLOSPORINE. [Concomitant]
     Active Substance: CYCLOSPORINE
     Indication: DRY EYE
     Dosage: 1 DROP, UNK
     Dates: start: 20170309
  9. OPSUMIT [Suspect]
     Active Substance: MACITENTAN
     Indication: PULMONARY ARTERIAL HYPERTENSION
     Dosage: 10 MG, QD
     Route: 048
     Dates: start: 20160601, end: 201707
  10. RIFAXIMIN. [Concomitant]
     Active Substance: RIFAXIMIN
     Indication: IRRITABLE BOWEL SYNDROME
     Dosage: 550 MG, BID
     Dates: start: 20160602
  11. ONDANSETRON [Concomitant]
     Active Substance: ONDANSETRON
     Indication: NAUSEA
     Dosage: 4 MG, TID
     Route: 048
     Dates: start: 20170516
  12. SORAFENIB [Concomitant]
     Active Substance: SORAFENIB
     Indication: CHEMOTHERAPY
     Dosage: 200 MG, BID
     Route: 048
     Dates: start: 20170516

REACTIONS (17)
  - Hepatocellular carcinoma [Fatal]
  - Pleural effusion [Not Recovered/Not Resolved]
  - Breath sounds abnormal [Not Recovered/Not Resolved]
  - Portopulmonary hypertension [Unknown]
  - Back pain [Recovered/Resolved]
  - Weight decreased [Fatal]
  - Fatigue [Fatal]
  - Wheezing [Unknown]
  - Metastases to lung [Not Recovered/Not Resolved]
  - Cough [Recovered/Resolved]
  - Chills [Recovered/Resolved]
  - Pulmonary oedema [Unknown]
  - Hepatic cirrhosis [Unknown]
  - Blood bilirubin increased [Not Recovered/Not Resolved]
  - Dyspnoea [Unknown]
  - Chest pain [Recovered/Resolved]
  - Aspartate aminotransferase increased [Unknown]

NARRATIVE: CASE EVENT DATE: 201704
